FAERS Safety Report 8790403 (Version 2)
Quarter: 2013Q1

REPORT INFORMATION
  Report Type: Spontaneous
  Country: FR (occurrence: FR)
  Receive Date: 20120917
  Receipt Date: 20130122
  Transmission Date: 20140127
  Serious: Yes (Other)
  Sender: FDA-Public Use
  Company Number: FR-JNJFOC-20120904920

PATIENT
  Age: 67 Year
  Sex: Female

DRUGS (2)
  1. REMICADE [Suspect]
     Indication: RHEUMATOID ARTHRITIS
     Dosage: STARTED FROM 2007 OR 2008
     Route: 042
  2. METHOTREXATE [Concomitant]
     Route: 065

REACTIONS (2)
  - Scleritis [Recovering/Resolving]
  - Enzyme level increased [Unknown]
